FAERS Safety Report 6239373-6 (Version None)
Quarter: 2009Q2

REPORT INFORMATION
  Report Type: 
  Country: None (occurrence: None)
  Receive Date: 20090622
  Receipt Date: 20090612
  Transmission Date: 20091009
  Serious: Yes (Other)
  Sender: FDA-Public Use
  Company Number: US-PFIZER INC-2009227021

PATIENT
  Sex: Female

DRUGS (2)
  1. CADUET [Suspect]
     Indication: BLOOD PRESSURE FLUCTUATION
     Dosage: 5 MG/ 40 MG, 1X/DAY
     Route: 048
     Dates: start: 20090605
  2. CADUET [Suspect]
     Indication: BLOOD CHOLESTEROL INCREASED

REACTIONS (4)
  - ACTIVITIES OF DAILY LIVING IMPAIRED [None]
  - FATIGUE [None]
  - HYPERTENSION [None]
  - LETHARGY [None]
